FAERS Safety Report 23428426 (Version 1)
Quarter: 2024Q1

REPORT INFORMATION
  Report Type: Report from Study
  Country: EG (occurrence: EG)
  Receive Date: 20240122
  Receipt Date: 20240122
  Transmission Date: 20240410
  Serious: Yes (Other)
  Sender: FDA-Public Use
  Company Number: EG-SANDOZ-SDZ2024EG005289

PATIENT
  Age: 68 Year
  Sex: Female
  Weight: 84 kg

DRUGS (14)
  1. HYRIMOZ [Suspect]
     Active Substance: ADALIMUMAB-ADAZ
     Indication: Rheumatoid arthritis
     Dosage: 40 MG
     Route: 058
     Dates: start: 20240108
  2. METHOTREXATE [Suspect]
     Active Substance: METHOTREXATE
     Indication: Rheumatoid arthritis
     Dosage: UNK 0.5 CM EVERY WEEK OR EVERY 15 DAYS
     Route: 042
     Dates: start: 2021, end: 2022
  3. CALCIUM [Concomitant]
     Active Substance: CALCIUM
     Indication: Osteoarthritis
     Dosage: UNK, QD
     Route: 048
     Dates: start: 2001
  4. LORATADINE [Concomitant]
     Active Substance: LORATADINE
     Indication: Hypersensitivity
     Dosage: UNK, QD; ONE TABLET ONCE DAILY
     Route: 048
  5. UNSPECIFIED INGREDIENT [Concomitant]
     Active Substance: UNSPECIFIED INGREDIENT
     Indication: Glaucoma
     Dosage: UNK
     Route: 061
  6. FORADIL [Concomitant]
     Active Substance: FORMOTEROL FUMARATE
     Indication: Nasopharyngitis
     Dosage: UNK; ONE CAPSULE USED IN INHALER DAILY; AND ONE CAPSULE TWICE DAILY IF SHE SUFFERS FROM COLD.
     Route: 061
  7. HYDROXYCHLOROQUINE SULFATE [Concomitant]
     Active Substance: HYDROXYCHLOROQUINE SULFATE
     Indication: Hypersensitivity
     Dosage: 200 MG, QD
     Route: 048
     Dates: start: 202312, end: 202312
  8. BUDESONIDE [Concomitant]
     Active Substance: BUDESONIDE
     Indication: Nasopharyngitis
     Dosage: ONE CAPSULE USED IN INHALER DAILY; AND ONE CAPSULE TWICE DAILY IF SHE SUFFERS FROM COLD.
     Route: 061
  9. SEA WATER [Concomitant]
     Active Substance: SEA WATER
     Indication: Nasal congestion
     Dosage: UNK
     Route: 061
  10. AVOCADO OIL\SOYBEAN OIL [Concomitant]
     Active Substance: AVOCADO OIL\SOYBEAN OIL
     Indication: Rheumatoid arthritis
     Dosage: UNK
     Route: 048
     Dates: start: 202306
  11. PROLIA [Concomitant]
     Active Substance: DENOSUMAB
     Indication: Product used for unknown indication
     Dosage: UNK; ONE SYRINGE EVERY 6 MONTHS
     Route: 058
     Dates: start: 202303
  12. THYROX [Concomitant]
     Indication: Thyroid disorder
     Dosage: UNK
     Route: 065
  13. VITAMIN D NOS [Concomitant]
     Active Substance: VITAMIN D NOS
     Indication: Osteoarthritis
     Dosage: UNK, QD
     Route: 065
     Dates: start: 2001
  14. VITAMIN D NOS [Concomitant]
     Active Substance: VITAMIN D NOS
     Indication: Cervical friability

REACTIONS (5)
  - Pruritus [Not Recovered/Not Resolved]
  - Hypersensitivity [Not Recovered/Not Resolved]
  - Diarrhoea [Not Recovered/Not Resolved]
  - Drug ineffective [Unknown]
  - Nasopharyngitis [Recovering/Resolving]

NARRATIVE: CASE EVENT DATE: 20240108
